FAERS Safety Report 8476536-3 (Version None)
Quarter: 2012Q2

REPORT INFORMATION
  Report Type: 
  Country: None (occurrence: None)
  Receive Date: 20120628
  Receipt Date: 20120620
  Transmission Date: 20120825
  Serious: Yes (Other)
  Sender: FDA-Public Use
  Company Number: GB-JNJFOC-20120611639

PATIENT
  Age: 60 Year
  Sex: Female
  Weight: 103 kg

DRUGS (1)
  1. REMICADE [Suspect]
     Indication: RHEUMATOID ARTHRITIS
     Route: 042
     Dates: start: 20060307, end: 20110302

REACTIONS (1)
  - ESSENTIAL THROMBOCYTHAEMIA [None]
